FAERS Safety Report 6334170-5 (Version None)
Quarter: 2009Q3

REPORT INFORMATION
  Report Type: 
  Country: None (occurrence: None)
  Receive Date: 20090829
  Receipt Date: 20090715
  Transmission Date: 20100115
  Serious: No
  Sender: FDA-Public Use
  Company Number: US-ABBOTT-09P-163-0586164-00

PATIENT
  Sex: Male
  Weight: 136.2 kg

DRUGS (2)
  1. SIMCOR [Suspect]
     Indication: BLOOD CHOLESTEROL INCREASED
     Route: 048
     Dates: start: 20090501, end: 20090701
  2. UNKNOWN HIGH BLOOD PRESSURE MEDICATION [Concomitant]
     Indication: HYPERTENSION

REACTIONS (5)
  - BACK PAIN [None]
  - BLOOD URINE PRESENT [None]
  - DYSURIA [None]
  - INCORRECT DRUG ADMINISTRATION DURATION [None]
  - NEPHROLITHIASIS [None]
